FAERS Safety Report 6519657-4 (Version None)
Quarter: 2009Q4

REPORT INFORMATION
  Report Type: 
  Country: None (occurrence: None)
  Receive Date: 20091228
  Receipt Date: 20091217
  Transmission Date: 20100525
  Serious: Yes (Other)
  Sender: FDA-Public Use
  Company Number: GB-PFIZER INC-2009311487

PATIENT
  Age: 26 Year
  Sex: Male
  Weight: 105 kg

DRUGS (2)
  1. CHAMPIX [Suspect]
     Indication: SMOKING CESSATION THERAPY
     Dosage: UNK
     Route: 048
     Dates: start: 20091119, end: 20091210
  2. PROPRANOLOL [Concomitant]

REACTIONS (1)
  - CHOREA [None]
